FAERS Safety Report 5195145-5 (Version None)
Quarter: 2006Q4

REPORT INFORMATION
  Report Type: 
  Country: None (occurrence: None)
  Receive Date: 20061229
  Receipt Date: 20051116
  Transmission Date: 20070319
  Serious: Yes (Hospitalization)
  Sender: FDA-Public Use
  Company Number: FR-PFIZER INC-2005158916

PATIENT
  Sex: Female

DRUGS (8)
  1. AROMASIN [Suspect]
     Indication: BREAST CANCER
     Route: 050
  2. GLICLAZIDE [Concomitant]
     Route: 065
  3. ALDALIX [Concomitant]
     Dosage: TEXT:ONE TABLET DAILY FOR THREE MONTHS-FREQ:ONE TABLET DAILY FOR THREE MONTHS
     Route: 065
  4. SOPROL [Concomitant]
     Route: 065
  5. LEVOTHYROXINE SODIUM [Concomitant]
     Route: 065
  6. PARACETAMOL ^COX^ [Concomitant]
     Route: 065
  7. SERESTA [Concomitant]
     Dosage: DAILY DOSE:50MG-TEXT:HALF TABLET DAILY FOR THREE MONTHS-FREQ:HALF TABLET DAILY FOR THREE MONTHS
     Route: 065
  8. DIOSMINE [Concomitant]
     Route: 065

REACTIONS (3)
  - ABDOMINAL PAIN [None]
  - ENDOMETRIAL CANCER [None]
  - UTERINE HAEMORRHAGE [None]
